FAERS Safety Report 9730119 (Version 1)
Quarter: 2013Q4

REPORT INFORMATION
  Report Type: Report from Study
  Country: NL (occurrence: NL)
  Receive Date: 20131204
  Receipt Date: 20131204
  Transmission Date: 20140711
  Serious: Yes (Hospitalization)
  Sender: FDA-Public Use
  Company Number: NL-BAXTER-2013BAX047005

PATIENT
  Age: 76 Year
  Sex: Female

DRUGS (4)
  1. GAMMAGARD S/D 10, POEDER VOOR INFUSIEVLOEISTOF [Suspect]
     Indication: MULTIPLE SCLEROSIS
     Route: 042
     Dates: start: 20131031
  2. GAMMAGARD S/D 10, POEDER VOOR INFUSIEVLOEISTOF [Suspect]
     Indication: OFF LABEL USE
     Route: 042
     Dates: start: 20111007
  3. GAMMAGARD S/D 5, POEDER VOOR INFUSIEVLOEISTOF [Suspect]
     Indication: MULTIPLE SCLEROSIS
     Route: 042
     Dates: start: 20131031
  4. GAMMAGARD S/D 5, POEDER VOOR INFUSIEVLOEISTOF [Suspect]
     Indication: OFF LABEL USE

REACTIONS (5)
  - Dehydration [Not Recovered/Not Resolved]
  - Urinary tract infection [Not Recovered/Not Resolved]
  - Pneumonia [Not Recovered/Not Resolved]
  - Blood potassium abnormal [Not Recovered/Not Resolved]
  - Asthenia [Not Recovered/Not Resolved]
